FAERS Safety Report 16289703 (Version 3)
Quarter: 2019Q2

REPORT INFORMATION
  Report Type: Report from Study
  Country: US (occurrence: US)
  Receive Date: 20190509
  Receipt Date: 20190612
  Transmission Date: 20190711
  Serious: Yes (Life-Threatening, Hospitalization)
  Sender: FDA-Public Use
  Company Number: US-ROCHE-2313607

PATIENT
  Age: 76 Year
  Sex: Male
  Weight: 92.5 kg

DRUGS (2)
  1. IBRUTINIB [Suspect]
     Active Substance: IBRUTINIB
     Indication: CHRONIC LYMPHOCYTIC LEUKAEMIA
     Dosage: THE DATE OF MOST RECENT DOSE PRIOR TO EVENT ONSET: 20/APR/2019
     Route: 048
     Dates: start: 20190418
  2. OBINUTUZUMAB. [Suspect]
     Active Substance: OBINUTUZUMAB
     Indication: CHRONIC LYMPHOCYTIC LEUKAEMIA
     Dosage: THE DATE OF MOST RECENT DOSE OF OBINUTUZUMAB PRIOR TO EVENT ONSET: 19/APR/2019
     Route: 042
     Dates: start: 20190418

REACTIONS (4)
  - Mitral valve disease [Not Recovered/Not Resolved]
  - Pneumonitis [Not Recovered/Not Resolved]
  - Respiratory failure [Not Recovered/Not Resolved]
  - Pulmonary oedema [Not Recovered/Not Resolved]

NARRATIVE: CASE EVENT DATE: 20190419
